FAERS Safety Report 25302733 (Version 1)
Quarter: 2025Q2

REPORT INFORMATION
  Report Type: Spontaneous
  Country: DE (occurrence: DE)
  Receive Date: 20250512
  Receipt Date: 20250512
  Transmission Date: 20250717
  Serious: Yes (Other)
  Sender: APELLIS PHARMACEUTICALS
  Company Number: DE-BIOVITRUM-2025-DE-006321

PATIENT

DRUGS (1)
  1. PEGCETACOPLAN [Suspect]
     Active Substance: PEGCETACOPLAN
     Indication: Product used for unknown indication
     Route: 058
     Dates: start: 20230825

REACTIONS (8)
  - Bacteraemia [Unknown]
  - Heavy menstrual bleeding [Unknown]
  - Uterine leiomyoma [Unknown]
  - Alpha haemolytic streptococcal infection [Unknown]
  - Haemoglobin abnormal [Unknown]
  - Blood lactate dehydrogenase abnormal [Unknown]
  - Haptoglobin abnormal [Unknown]
  - Blood bilirubin abnormal [Unknown]

NARRATIVE: CASE EVENT DATE: 20240501
